FAERS Safety Report 7705741-6 (Version None)
Quarter: 2011Q3

REPORT INFORMATION
  Report Type: 
  Country: None (occurrence: None)
  Receive Date: 20110824
  Receipt Date: 20110815
  Transmission Date: 20111222
  Serious: Yes (Hospitalization, Other)
  Sender: FDA-Public Use
  Company Number: US-BAYER-201038216NA

PATIENT
  Sex: Female
  Weight: 54 kg

DRUGS (4)
  1. MULTI-VITAMIN [Concomitant]
     Dosage: UNK UNK, QD
  2. MOTRIN [Concomitant]
     Indication: PAIN
     Dosage: UNK UNK, PRN
     Dates: start: 20071001
  3. YASMIN [Suspect]
     Dosage: UNK
     Dates: start: 20010101, end: 20050101
  4. ANTIBIOTICS [Concomitant]
     Indication: URINARY TRACT INFECTION
     Dosage: UNK UNK, TID
     Dates: start: 20071001

REACTIONS (3)
  - GALLBLADDER DISORDER [None]
  - PAIN [None]
  - BILIARY COLIC [None]
